FAERS Safety Report 14030726 (Version 2)
Quarter: 2017Q4

REPORT INFORMATION
  Report Type: Spontaneous
  Country: US (occurrence: US)
  Receive Date: 20171002
  Receipt Date: 20171103
  Transmission Date: 20180321
  Serious: Yes (Other)
  Sender: FDA-Public Use
  Company Number: US-TEVA-810973ACC

PATIENT
  Age: 34 Year
  Sex: Female
  Weight: 71.73 kg

DRUGS (3)
  1. CELEXA [Concomitant]
     Active Substance: CITALOPRAM HYDROBROMIDE
  2. PARAGARD T 380A [Suspect]
     Active Substance: COPPER
     Indication: CONTRACEPTION
     Dates: start: 20170602, end: 20170922
  3. ANAPROX DS [Concomitant]
     Active Substance: NAPROXEN SODIUM

REACTIONS (2)
  - Device dislocation [Recovered/Resolved]
  - Vulvovaginal discomfort [Unknown]

NARRATIVE: CASE EVENT DATE: 20170922
